FAERS Safety Report 7385499-3 (Version None)
Quarter: 2011Q1

REPORT INFORMATION
  Report Type: 
  Country: None (occurrence: None)
  Receive Date: 20110330
  Receipt Date: 20110321
  Transmission Date: 20110831
  Serious: Yes (Other)
  Sender: FDA-Public Use
  Company Number: TH-BRISTOL-MYERS SQUIBB COMPANY-15630916

PATIENT

DRUGS (1)
  1. VIDEX EC [Suspect]
     Dosage: RECOMMENDED DOSE IS 125MG

REACTIONS (2)
  - OVERDOSE [None]
  - GLOMERULAR FILTRATION RATE DECREASED [None]
